FAERS Safety Report 7629835-9 (Version None)
Quarter: 2011Q3

REPORT INFORMATION
  Report Type: 
  Country: None (occurrence: None)
  Receive Date: 20110722
  Receipt Date: 20110712
  Transmission Date: 20111222
  Serious: Yes (Other)
  Sender: FDA-Public Use
  Company Number: US-AMGEN-USASP2010009272

PATIENT
  Age: 62 Year
  Sex: Male

DRUGS (1)
  1. ENBREL [Suspect]
     Indication: RHEUMATOID ARTHRITIS
     Dosage: 50 MG, QWK
     Route: 058
     Dates: start: 20100823

REACTIONS (5)
  - PROCEDURAL PAIN [None]
  - INJECTION SITE PAIN [None]
  - DYSPEPSIA [None]
  - ABDOMINAL DISCOMFORT [None]
  - INGUINAL HERNIA STRANGULATED [None]
